FAERS Safety Report 12999210 (Version 1)
Quarter: 2016Q4

REPORT INFORMATION
  Report Type: Spontaneous
  Country: SE (occurrence: SE)
  Receive Date: 20161205
  Receipt Date: 20161205
  Transmission Date: 20170207
  Serious: Yes (Hospitalization)
  Sender: FDA-Public Use
  Company Number: SE-ELI_LILLY_AND_COMPANY-SE201611009139

PATIENT
  Age: 19 Year
  Sex: Female
  Weight: 49 kg

DRUGS (3)
  1. CYMBALTA [Suspect]
     Active Substance: DULOXETINE HYDROCHLORIDE
     Dosage: 300 MG, SINGLE
     Route: 048
     Dates: start: 20121109, end: 20121109
  2. OLANZAPINE. [Suspect]
     Active Substance: OLANZAPINE
     Dosage: UNK, SINGLE
     Route: 048
     Dates: start: 20121109, end: 20121109
  3. ALVEDON [Suspect]
     Active Substance: ACETAMINOPHEN
     Dosage: 19.95 G, SINGLE
     Route: 048
     Dates: start: 20121109, end: 20121109

REACTIONS (7)
  - Anxiety [Unknown]
  - Analgesic drug level increased [Recovered/Resolved]
  - Toxicity to various agents [Recovered/Resolved]
  - Intentional self-injury [Recovered/Resolved]
  - Restless legs syndrome [Unknown]
  - Intentional overdose [Recovered/Resolved]
  - International normalised ratio increased [Unknown]

NARRATIVE: CASE EVENT DATE: 20121109
